FAERS Safety Report 9850640 (Version 1)
Quarter: 2013Q4

REPORT INFORMATION
  Report Type: Spontaneous
  Country: US (occurrence: None)
  Receive Date: 20131127
  Receipt Date: 20131127
  Transmission Date: 20140711
  Serious: No
  Sender: FDA-Public Use
  Company Number: 223124LEO

PATIENT
  Age: 61 Year
  Sex: Female

DRUGS (4)
  1. PICATO GEL [Suspect]
     Indication: PRECANCEROUS SKIN LESION
     Route: 061
     Dates: start: 20130802, end: 20130803
  2. PRAVASTATIN (PRAVASTATIN) [Concomitant]
  3. PREMPRO (PROVELLA-14_ [Concomitant]
  4. LORAZEPAM (LORAZEPAM) [Concomitant]

REACTIONS (2)
  - Application site vesicles [None]
  - Application site pain [None]
